FAERS Safety Report 9432174 (Version 2)
Quarter: 2013Q3

REPORT INFORMATION
  Report Type: Spontaneous
  Country: IT (occurrence: IT)
  Receive Date: 20130731
  Receipt Date: 20130805
  Transmission Date: 20140515
  Serious: Yes (Hospitalization)
  Sender: FDA-Public Use
  Company Number: IT-MERCK-1307ITA015565

PATIENT
  Age: 83 Year
  Sex: Female

DRUGS (3)
  1. SINVACOR 40 MG COMPRESSE RIVESTITE CON FILM [Suspect]
     Indication: CARDIOVASCULAR EVENT PROPHYLAXIS
     Dosage: 40 MG, DAILY
     Route: 048
     Dates: start: 20130123, end: 20130623
  2. NITROGLYCERIN [Concomitant]
  3. CARDIOASPIRIN [Concomitant]

REACTIONS (5)
  - Muscle enzyme increased [Recovering/Resolving]
  - Hypertransaminasaemia [Recovering/Resolving]
  - Asthenia [Recovering/Resolving]
  - Abdominal pain upper [Recovering/Resolving]
  - Nausea [Recovering/Resolving]
